FAERS Safety Report 17868703 (Version 1)
Quarter: 2020Q2

REPORT INFORMATION
  Report Type: Spontaneous
  Country: US (occurrence: US)
  Receive Date: 20200606
  Receipt Date: 20200606
  Transmission Date: 20200714
  Serious: Yes (Other)
  Sender: FDA-Public Use
  Company Number: None

PATIENT
  Age: 74 Year
  Sex: Female
  Weight: 58.2 kg

DRUGS (8)
  1. FAMOTIDINE. [Concomitant]
     Active Substance: FAMOTIDINE
     Dates: start: 20200521, end: 20200605
  2. MEROPENEM. [Concomitant]
     Active Substance: MEROPENEM
     Dates: start: 20200525, end: 20200606
  3. TOLVAPTAN [Concomitant]
     Active Substance: TOLVAPTAN
     Dates: start: 20200531, end: 20200606
  4. METOPROLOL. [Concomitant]
     Active Substance: METOPROLOL
     Dates: start: 20200604, end: 20200605
  5. SODIUM CHLORIDE. [Concomitant]
     Active Substance: SODIUM CHLORIDE
     Dates: start: 20200525, end: 20200606
  6. REMDESIVIR. [Suspect]
     Active Substance: REMDESIVIR
     Indication: COVID-19
     Route: 040
     Dates: start: 20200602, end: 20200606
  7. HEPARIN [Concomitant]
     Active Substance: HEPARIN SODIUM
     Dates: start: 20200529, end: 20200606
  8. ACETAMINOPHEN. [Concomitant]
     Active Substance: ACETAMINOPHEN
     Dates: start: 20200601, end: 20200606

REACTIONS (4)
  - Blood alkaline phosphatase increased [None]
  - Liver function test abnormal [None]
  - Hypoxia [None]
  - General physical health deterioration [None]

NARRATIVE: CASE EVENT DATE: 20200606
